FAERS Safety Report 8224154-4 (Version None)
Quarter: 2012Q1

REPORT INFORMATION
  Report Type: 
  Country: None (occurrence: None)
  Receive Date: 20120321
  Receipt Date: 20120313
  Transmission Date: 20120608
  Serious: Yes (Other)
  Sender: FDA-Public Use
  Company Number: US-BAYER-2011-080104

PATIENT
  Age: 24 Year
  Sex: Female
  Weight: 73.923 kg

DRUGS (3)
  1. DROSPIRENONE AND ETHINYL ESTRADIOL [Suspect]
     Dosage: UNK
     Dates: start: 20000301
  2. LIPITOR [Concomitant]
     Dosage: UNK
     Dates: start: 20000101
  3. YASMIN [Suspect]
     Dosage: UNK
     Dates: start: 20000301

REACTIONS (10)
  - ANXIETY [None]
  - PAIN IN EXTREMITY [None]
  - INJURY [None]
  - MALAISE [None]
  - EMOTIONAL DISTRESS [None]
  - THROMBOPHLEBITIS [None]
  - DEEP VEIN THROMBOSIS [None]
  - THROMBOSIS [None]
  - GENERAL PHYSICAL HEALTH DETERIORATION [None]
  - PAIN [None]
